FAERS Safety Report 9692378 (Version 1)
Quarter: 2013Q4

REPORT INFORMATION
  Report Type: Spontaneous
  Country: US (occurrence: US)
  Receive Date: 20131118
  Receipt Date: 20131118
  Transmission Date: 20140711
  Serious: No
  Sender: FDA-Public Use
  Company Number: US-PFIZER INC-2013326439

PATIENT
  Age: 78 Year
  Sex: Female
  Weight: 65.31 kg

DRUGS (3)
  1. NORVASC [Suspect]
     Indication: HYPERTENSION
     Dosage: 5 MG, 1X/DAY
  2. NORVASC [Suspect]
     Dosage: 10 MG, 1X/DAY
     Dates: start: 20131101
  3. METFORMIN [Concomitant]
     Indication: DIABETES MELLITUS
     Dosage: 1000 MG, 2X/DAY

REACTIONS (1)
  - Swelling [Recovered/Resolved]
